FAERS Safety Report 16651418 (Version 3)
Quarter: 2019Q3

REPORT INFORMATION
  Report Type: Spontaneous
  Country: NL (occurrence: NL)
  Receive Date: 20190731
  Receipt Date: 20190808
  Transmission Date: 20191004
  Serious: Yes (Life-Threatening, Other)
  Sender: FDA-Public Use
  Company Number: NL-PFIZER INC-2019327180

PATIENT
  Age: 37 Year
  Sex: Female

DRUGS (6)
  1. PROPRANOLOL HYDROCHLORIDE. [Concomitant]
     Active Substance: PROPRANOLOL HYDROCHLORIDE
     Indication: ELECTROCARDIOGRAM QT PROLONGED
  2. PROPRANOLOL HYDROCHLORIDE. [Concomitant]
     Active Substance: PROPRANOLOL HYDROCHLORIDE
     Indication: VENTRICULAR TACHYCARDIA
     Dosage: UNK
  3. DICLOFENAC [Concomitant]
     Active Substance: DICLOFENAC
     Dosage: UNK
  4. MEBEVERINE [Concomitant]
     Active Substance: MEBEVERINE
     Dosage: UNK
  5. CORDARONE [Suspect]
     Active Substance: AMIODARONE HYDROCHLORIDE
     Indication: TORSADE DE POINTES
     Dosage: UNK
  6. PROPRANOLOL HYDROCHLORIDE. [Concomitant]
     Active Substance: PROPRANOLOL HYDROCHLORIDE
     Indication: EXTRASYSTOLES

REACTIONS (2)
  - Condition aggravated [Unknown]
  - Ventricular fibrillation [Unknown]
